FAERS Safety Report 13124838 (Version 1)
Quarter: 2017Q1

REPORT INFORMATION
  Report Type: Spontaneous
  Country: US (occurrence: US)
  Receive Date: 20170114
  Receipt Date: 20170114
  Transmission Date: 20170428
  Serious: Yes (Hospitalization)
  Sender: FDA-Public Use
  Company Number: None

PATIENT
  Age: 65 Year
  Sex: Female
  Weight: 51.8 kg

DRUGS (3)
  1. TAXOL [Suspect]
     Active Substance: PACLITAXEL
  2. CYCLOPHOSPHAMIDE. [Suspect]
     Active Substance: CYCLOPHOSPHAMIDE
  3. DOXORUBICIN HYDROCHLORIDE. [Suspect]
     Active Substance: DOXORUBICIN HYDROCHLORIDE

REACTIONS (12)
  - Mucosal inflammation [None]
  - Neutropenia [None]
  - Asthenia [None]
  - Orthostatic intolerance [None]
  - Neuropathy peripheral [None]
  - Toxicity to various agents [None]
  - Clostridium difficile colitis [None]
  - Weight decreased [None]
  - Decreased appetite [None]
  - Fall [None]
  - Adverse drug reaction [None]
  - Fatigue [None]

NARRATIVE: CASE EVENT DATE: 20161230
